FAERS Safety Report 9340388 (Version 1)
Quarter: 2013Q2

REPORT INFORMATION
  Report Type: Spontaneous
  Country: ES (occurrence: ES)
  Receive Date: 20130610
  Receipt Date: 20130610
  Transmission Date: 20140414
  Serious: Yes (Other)
  Sender: FDA-Public Use
  Company Number: ES-UCBSA-087469

PATIENT
  Age: 63 Year
  Sex: Male

DRUGS (7)
  1. KEPPRA [Suspect]
     Indication: EPILEPSY
     Route: 048
     Dates: start: 20110425, end: 20110502
  2. CAPOTEN [Concomitant]
     Indication: HYPERTENSION
     Route: 048
  3. COROPRES [Concomitant]
     Indication: HYPERTENSION
     Route: 048
  4. NOCTAMID [Concomitant]
     Indication: INSOMNIA
     Route: 048
  5. OPTOVITE B12 [Concomitant]
     Indication: VITAMIN B12 DEFICIENCY
     Dosage: 1000 GAMMAS 5 SYRINGES
     Route: 048
  6. ORFIDAL [Concomitant]
     Indication: INSOMNIA
     Route: 048
  7. PLANTABEN [Concomitant]
     Indication: CONSTIPATION
     Route: 048

REACTIONS (3)
  - Disturbance in attention [Recovered/Resolved]
  - Ataxia [Recovered/Resolved]
  - Urinary incontinence [Recovered/Resolved]
